FAERS Safety Report 14629022 (Version 1)
Quarter: 2018Q1

REPORT INFORMATION
  Report Type: Spontaneous
  Country: US (occurrence: US)
  Receive Date: 20180313
  Receipt Date: 20180313
  Transmission Date: 20180509
  Serious: Yes (Life-Threatening, Hospitalization, Other)
  Sender: FDA-Public Use
  Company Number: US-MACLEODS PHARMACEUTICALS US LTD-MAC2018011066

PATIENT

DRUGS (1)
  1. METFORMIN HYDROCHLORIDE TABLET [Suspect]
     Active Substance: METFORMIN HYDROCHLORIDE
     Indication: SUICIDAL IDEATION
     Dosage: 10000 MG, SINGLE
     Route: 048

REACTIONS (12)
  - Vomiting [Recovered/Resolved]
  - Altered state of consciousness [Recovered/Resolved]
  - Somnolence [Recovered/Resolved]
  - Cardiomyopathy [Unknown]
  - Renal impairment [Unknown]
  - Lactic acidosis [Unknown]
  - Intentional overdose [Unknown]
  - Abdominal pain [Recovered/Resolved]
  - Aggression [Recovered/Resolved]
  - Toxicity to various agents [Unknown]
  - Metabolic acidosis [Unknown]
  - Hypoglycaemia [Recovered/Resolved]
